FAERS Safety Report 9062003 (Version 1)
Quarter: 2013Q1

REPORT INFORMATION
  Report Type: Spontaneous
  Country: FR (occurrence: FR)
  Receive Date: 20130128
  Receipt Date: 20130128
  Transmission Date: 20140127
  Serious: Yes (Other)
  Sender: FDA-Public Use
  Company Number: FR-AMGEN-FRASP2013005522

PATIENT
  Sex: Female

DRUGS (3)
  1. ENBREL [Suspect]
     Indication: RHEUMATOID ARTHRITIS
     Dosage: 50 MG, WEEKLY
     Dates: start: 2012
  2. ENBREL [Suspect]
     Dosage: 50 MG, EVERY 10 DAYS
  3. METOJECT [Suspect]
     Indication: RHEUMATOID ARTHRITIS
     Dosage: 15 MG, WEEKLY

REACTIONS (3)
  - Rheumatoid arthritis [Not Recovered/Not Resolved]
  - Venous thrombosis limb [Recovered/Resolved]
  - Periphlebitis [Recovered/Resolved]
